FAERS Safety Report 7201744-9 (Version None)
Quarter: 2010Q4

REPORT INFORMATION
  Report Type: 
  Country: None (occurrence: None)
  Receive Date: 20101229
  Receipt Date: 20101220
  Transmission Date: 20110411
  Serious: Yes (Other)
  Sender: FDA-Public Use
  Company Number: DE-TEVA-260678GER

PATIENT
  Age: 54 Year
  Sex: Female

DRUGS (4)
  1. PROPOFOL [Suspect]
     Indication: GLAUCOMA SURGERY
     Route: 040
  2. PROPOFOL [Suspect]
     Indication: ANAESTHESIA
     Route: 040
  3. REMIFENTANIL [Suspect]
     Indication: GLAUCOMA SURGERY
     Dosage: 1000 MICROGRAMM/HR
     Route: 041
  4. REMIFENTANIL [Suspect]
     Indication: ANAESTHESIA

REACTIONS (1)
  - MUSCLE SPASMS [None]
